FAERS Safety Report 18170255 (Version 7)
Quarter: 2020Q4

REPORT INFORMATION
  Report Type: Spontaneous
  Country: US (occurrence: US)
  Receive Date: 20200819
  Receipt Date: 20201026
  Transmission Date: 20210113
  Serious: No
  Sender: FDA-Public Use
  Company Number: US-PFIZER INC-2020309286

PATIENT
  Age: 5 Year
  Sex: Female
  Weight: 13.61 kg

DRUGS (2)
  1. GENOTROPIN [Suspect]
     Active Substance: SOMATROPIN
     Indication: TURNER^S SYNDROME
     Dosage: 0.6 MG
     Dates: start: 201912
  2. GENOTROPIN [Suspect]
     Active Substance: SOMATROPIN
     Dosage: UNK, DAILY (0.12ML OR 0.6MG, DAILY)
     Route: 058
     Dates: start: 201912, end: 20200808

REACTIONS (6)
  - Poor quality device used [Unknown]
  - Drug dose omission by device [Unknown]
  - Needle issue [Unknown]
  - Device information output issue [Unknown]
  - Device breakage [Unknown]
  - Device issue [Unknown]

NARRATIVE: CASE EVENT DATE: 202007
